FAERS Safety Report 14971509 (Version 9)
Quarter: 2018Q3

REPORT INFORMATION
  Report Type: Spontaneous
  Country: SE (occurrence: SE)
  Receive Date: 20180604
  Receipt Date: 20180803
  Transmission Date: 20181010
  Serious: Yes (Death, Congenital Anomaly, Other)
  Sender: FDA-Public Use
  Company Number: PHHY2018SE012847

PATIENT
  Age: 86 Year
  Sex: Male

DRUGS (9)
  1. AMOXICILLIN + CLAVULANIC ACID [Interacting]
     Active Substance: AMOXICILLIN\CLAVULANIC ACID
     Indication: RESPIRATORY TRACT INFECTION BACTERIAL
     Dosage: UNK
     Route: 048
  2. FUROSEMIDE. [Concomitant]
     Active Substance: FUROSEMIDE
     Indication: PRODUCT USED FOR UNKNOWN INDICATION
     Dosage: UNK
     Route: 065
  3. ACETYLSALICYLIC ACID [Interacting]
     Active Substance: ASPIRIN
     Dosage: 300 MG, 1D (LONG TERM 300 MG,1 IN 1 D)
     Route: 048
  4. ENALAPRIL [Suspect]
     Active Substance: ENALAPRIL
     Indication: CARDIOMYOPATHY
     Dosage: 5 MG, (LONG TERM)
     Route: 048
  5. ENALAPRIL [Suspect]
     Active Substance: ENALAPRIL
     Dosage: UNK, (LONGTERM)
     Route: 048
  6. CIPROFLOXACIN. [Interacting]
     Active Substance: CIPROFLOXACIN
     Indication: RESPIRATORY TRACT INFECTION BACTERIAL
     Dosage: 1000 MG, QD
     Route: 048
  7. PARACETAMOL [Concomitant]
     Active Substance: ACETAMINOPHEN
     Indication: PRODUCT USED FOR UNKNOWN INDICATION
     Dosage: UNK
     Route: 065
  8. ACETYLSALICYLIC ACID [Interacting]
     Active Substance: ASPIRIN
     Indication: CARDIOMYOPATHY
     Dosage: 300 MG (LONG TERM)
     Route: 048
  9. ACETYLSALICYLIC ACID [Interacting]
     Active Substance: ASPIRIN
     Dosage: UNK
     Route: 048

REACTIONS (2)
  - Drug interaction [Unknown]
  - Acute kidney injury [Fatal]
